FAERS Safety Report 4376940-9 (Version None)
Quarter: 2004Q2

REPORT INFORMATION
  Report Type: 
  Country: None (occurrence: None)
  Receive Date: 20040608
  Receipt Date: 20040526
  Transmission Date: 20050107
  Serious: Yes (Life-Threatening, Hospitalization, Other)
  Sender: FDA-Public Use
  Company Number: 2003031558

PATIENT
  Age: 39 Year
  Sex: Male
  Weight: 91.5 kg

DRUGS (19)
  1. LIPITOR [Suspect]
     Indication: HYPERLIPIDAEMIA
     Dosage: 80 MG (1 IN 1 D, ORAL)
     Route: 048
     Dates: end: 20030603
  2. FENOFIBRATE [Suspect]
     Indication: HYPERLIPIDAEMIA
     Dosage: 160 MG (1 IN 1 D) ORAL
     Route: 048
     Dates: end: 20030603
  3. ISOFLURANE [Suspect]
     Indication: ANAESTHESIA
  4. ASPIRIN [Concomitant]
  5. CLOPIDOGREL BISULFATE [Concomitant]
  6. BISOPROLOL [Concomitant]
  7. LANSOPRAZOLE [Concomitant]
  8. RAMIPRIL [Concomitant]
  9. FENTANYL [Concomitant]
  10. ETOMIDATE [Concomitant]
  11. VECURONIUM BROMIDE [Concomitant]
  12. CEFOTAXIME [Concomitant]
  13. PROTAMINE SULFATE [Concomitant]
  14. HEPARIN [Concomitant]
  15. GLYCERYL TRINITRATE [Concomitant]
  16. NOREPINEPHRINE [Concomitant]
  17. FUROSEMIDE [Concomitant]
  18. LORAZEPAM [Concomitant]
  19. RANITIDINE [Concomitant]

REACTIONS (4)
  - BODY TEMPERATURE INCREASED [None]
  - POST PROCEDURAL COMPLICATION [None]
  - RENAL FAILURE ACUTE [None]
  - RHABDOMYOLYSIS [None]
